FAERS Safety Report 13923216 (Version 1)
Quarter: 2017Q3

REPORT INFORMATION
  Report Type: Spontaneous
  Country: US (occurrence: None)
  Receive Date: 20170830
  Receipt Date: 20170830
  Transmission Date: 20171127
  Serious: No
  Sender: FDA-Public Use
  Company Number: None

PATIENT
  Age: 43 Year
  Sex: Male

DRUGS (5)
  1. LOSARTAN. [Concomitant]
     Active Substance: LOSARTAN
  2. CIALIS [Concomitant]
     Active Substance: TADALAFIL
  3. PREDNISONE. [Concomitant]
     Active Substance: PREDNISONE
  4. ESOMEPRA [Concomitant]
     Active Substance: ESOMEPRAZOLE
  5. ENBREL [Suspect]
     Active Substance: ETANERCEPT
     Indication: PSORIASIS
     Route: 048

REACTIONS (1)
  - Drug dose omission [None]
